FAERS Safety Report 4664582-7 (Version None)
Quarter: 2005Q2

REPORT INFORMATION
  Report Type: 
  Country: None (occurrence: None)
  Receive Date: 20050518
  Receipt Date: 20050412
  Transmission Date: 20051028
  Serious: Yes (Hospitalization)
  Sender: FDA-Public Use
  Company Number: FR-GLAXOSMITHKLINE-B0378092A

PATIENT
  Age: 58 Year
  Sex: Male

DRUGS (9)
  1. DEROXAT [Suspect]
     Indication: DEPRESSION
     Dosage: 20MG PER DAY
     Route: 048
     Dates: start: 20050201, end: 20050416
  2. CELLCEPT [Concomitant]
     Dates: start: 20050301
  3. PROGRAF [Concomitant]
     Dates: start: 20050301
  4. PREDNISONE [Concomitant]
     Dates: start: 20050301
  5. CARDENSIEL [Concomitant]
  6. NEXIUM [Concomitant]
  7. EPO [Concomitant]
  8. ALLOPURINOL [Concomitant]
  9. LEXOMIL [Concomitant]

REACTIONS (5)
  - BLOOD POTASSIUM ABNORMAL [None]
  - GENERAL PHYSICAL HEALTH DETERIORATION [None]
  - HYPERKALAEMIA [None]
  - HYPONATRAEMIA [None]
  - TRANSAMINASES INCREASED [None]
